FAERS Safety Report 10250367 (Version 1)
Quarter: 2014Q2

REPORT INFORMATION
  Report Type: Report from Study
  Country: US (occurrence: None)
  Receive Date: 20140618
  Receipt Date: 20140618
  Transmission Date: 20141212
  Serious: Yes (Other)
  Sender: FDA-Public Use
  Company Number: 153267

PATIENT
  Age: 57 Year
  Sex: Female

DRUGS (1)
  1. CERUBIDINE [Suspect]
     Indication: LEUKAEMIA
     Route: 042
     Dates: start: 20080527, end: 20080528

REACTIONS (1)
  - Anaemia [None]
